FAERS Safety Report 18160194 (Version 1)
Quarter: 2020Q3

REPORT INFORMATION
  Report Type: Spontaneous
  Country: CA (occurrence: CA)
  Receive Date: 20200818
  Receipt Date: 20200818
  Transmission Date: 20201103
  Serious: Yes (Hospitalization, Other)
  Sender: FDA-Public Use
  Company Number: CA-AUROBINDO-AUR-APL-2020-039135

PATIENT
  Sex: Male

DRUGS (6)
  1. AA CLOZAPINE [Suspect]
     Active Substance: CLOZAPINE
     Dosage: 50 MILLIGRAM, ONCE A DAY
     Route: 048
  2. LITHIUM. [Suspect]
     Active Substance: LITHIUM
     Indication: MAJOR DEPRESSION
     Dosage: 150 MILLIGRAM, ONCE A DAY
     Route: 048
  3. PROPRANOLOL [Suspect]
     Active Substance: PROPRANOLOL HYDROCHLORIDE
     Indication: TACHYCARDIA
     Dosage: 20 MILLIGRAM, TWO TIMES A DAY
     Route: 048
  4. CONCERTA [Suspect]
     Active Substance: METHYLPHENIDATE HYDROCHLORIDE
     Indication: ATTENTION DEFICIT HYPERACTIVITY DISORDER
     Dosage: 90 MILLIGRAM, ONCE A DAY
     Route: 048
  5. PAROXETINE. [Suspect]
     Active Substance: PAROXETINE
     Indication: MAJOR DEPRESSION
     Dosage: 15 MILLIGRAM, ONCE A DAY
     Route: 048
  6. AA CLOZAPINE [Suspect]
     Active Substance: CLOZAPINE
     Indication: OPPOSITIONAL DEFIANT DISORDER
     Dosage: 100 MILLIGRAM, ONCE A DAY
     Route: 048

REACTIONS (8)
  - Respiratory disorder [Unknown]
  - Obesity [Unknown]
  - Contraindicated product administered [Unknown]
  - Asthma [Unknown]
  - Intentional product use issue [Unknown]
  - Viral infection [Unknown]
  - Respiratory distress [Unknown]
  - Off label use [Unknown]
